FAERS Safety Report 8839694 (Version 1)
Quarter: 2012Q4

REPORT INFORMATION
  Report Type: Spontaneous
  Country: US (occurrence: None)
  Receive Date: 20121012
  Receipt Date: 20121012
  Transmission Date: 20130627
  Serious: No
  Sender: FDA-Public Use
  Company Number: None

PATIENT
  Age: 55 None
  Sex: Female
  Weight: 69.85 kg

DRUGS (3)
  1. CYMBALTA [Suspect]
     Indication: OSTEOARTHRITIS
     Dates: start: 201209
  2. CYMBALTA [Suspect]
     Indication: JOINT PAIN
     Dates: start: 201209
  3. CYMBALTA [Suspect]
     Indication: DEPRESSION
     Dates: start: 201209

REACTIONS (5)
  - Middle insomnia [None]
  - Nausea [None]
  - Disorientation [None]
  - Anxiety [None]
  - Feeling jittery [None]
